FAERS Safety Report 5626235-8 (Version None)
Quarter: 2008Q1

REPORT INFORMATION
  Report Type: 
  Country: None (occurrence: None)
  Receive Date: 20080214
  Receipt Date: 20080208
  Transmission Date: 20080703
  Serious: Yes (Other)
  Sender: FDA-Public Use
  Company Number: B0507099A

PATIENT
  Age: 57 Year
  Sex: Male

DRUGS (3)
  1. ZANTAC [Suspect]
     Indication: PREMEDICATION
     Dosage: 50MG PER DAY
     Route: 042
     Dates: start: 20080205
  2. SEROTONE [Concomitant]
     Route: 065
  3. DECADRON [Concomitant]
     Route: 065

REACTIONS (1)
  - ANAPHYLACTIC SHOCK [None]
